FAERS Safety Report 12727365 (Version 1)
Quarter: 2016Q3

REPORT INFORMATION
  Report Type: Spontaneous
  Country: DE (occurrence: DE)
  Receive Date: 20160909
  Receipt Date: 20160909
  Transmission Date: 20161109
  Serious: Yes (Other)
  Sender: FDA-Public Use
  Company Number: DE-009507513-1609DEU002775

PATIENT
  Age: 59 Year
  Sex: Female
  Weight: 91 kg

DRUGS (9)
  1. ASPIRIN. [Concomitant]
     Active Substance: ASPIRIN
     Route: 048
  2. PANTOPRAZOLE [Concomitant]
     Active Substance: PANTOPRAZOLE SODIUM
  3. VALSARTAN. [Concomitant]
     Active Substance: VALSARTAN
  4. NEBIVOLOL. [Concomitant]
     Active Substance: NEBIVOLOL
  5. SIMVASTATIN. [Suspect]
     Active Substance: SIMVASTATIN
     Indication: CORONARY ARTERY DISEASE
     Dosage: UNK
     Route: 048
     Dates: end: 201512
  6. EZETROL [Suspect]
     Active Substance: EZETIMIBE
     Indication: CORONARY ARTERY DISEASE
     Dosage: UNK
     Route: 048
  7. MIFLONIDE [Concomitant]
     Active Substance: BUDESONIDE
  8. ATORVASTATIN [Suspect]
     Active Substance: ATORVASTATIN
     Indication: CORONARY ARTERY DISEASE
     Dosage: UNK
     Dates: start: 201512, end: 201603
  9. RANEXA [Concomitant]
     Active Substance: RANOLAZINE

REACTIONS (2)
  - Alveolitis [Recovering/Resolving]
  - Drug intolerance [Unknown]

NARRATIVE: CASE EVENT DATE: 201603
